FAERS Safety Report 6099881-8 (Version None)
Quarter: 2009Q1

REPORT INFORMATION
  Report Type: 
  Country: None (occurrence: None)
  Receive Date: 20090226
  Receipt Date: 20090213
  Transmission Date: 20090719
  Serious: Yes (Hospitalization)
  Sender: FDA-Public Use
  Company Number: 2009000431

PATIENT
  Age: 79 Year
  Sex: Male

DRUGS (7)
  1. TARCEVA [Suspect]
     Indication: LUNG CARCINOMA CELL TYPE UNSPECIFIED RECURRENT
     Dosage: (150 MG, QD), ORAL
     Route: 048
     Dates: start: 20081227
  2. METOPROLOL TARTRATE [Concomitant]
  3. TORVAST (ATORVASTATIN CALCIUM) [Concomitant]
  4. ASPIRIN [Concomitant]
  5. PRELECTAL [Concomitant]
  6. AMLODIPINE [Concomitant]
  7. OMEPRAZOLE [Concomitant]

REACTIONS (4)
  - DIARRHOEA [None]
  - DYSPNOEA [None]
  - RASH GENERALISED [None]
  - URTICARIA [None]
